FAERS Safety Report 8392174 (Version 4)
Quarter: 2012Q4

REPORT INFORMATION
  Report Type: 
  Country: FR (occurrence: FR)
  Receive Date: 20120206
  Receipt Date: 20121004
  Transmission Date: 20130627
  Serious: Yes (Disabling)
  Sender: FDA-Public Use
  Company Number: FR-ASTELLAS-2012EU000808

PATIENT
  Sex: Female

DRUGS (4)
  1. ADVAGRAF [Suspect]
     Indication: LIVER TRANSPLANT
     Dosage: 8 mg, Unknown/D
     Route: 065
     Dates: start: 20111028
  2. ADVAGRAF [Suspect]
     Dosage: 7 mg, Unknown/D
     Route: 065
  3. PROGRAF [Suspect]
     Indication: LIVER TRANSPLANT
     Dosage: 8 mg, Unknown/D
     Route: 065
  4. CORTICOSTEROID NOS [Concomitant]
     Dosage: UNK
     Route: 065

REACTIONS (2)
  - Medication error [Unknown]
  - Adverse drug reaction [Unknown]
